FAERS Safety Report 4606600-8 (Version None)
Quarter: 2005Q2

REPORT INFORMATION
  Report Type: 
  Country: None (occurrence: None)
  Receive Date: 20050223
  Receipt Date: 20040511
  Transmission Date: 20051028
  Serious: Yes (Life-Threatening, Hospitalization, Other)
  Sender: FDA-Public Use
  Company Number: WAES 0405USA00700

PATIENT
  Age: 60 Year
  Sex: Female
  Weight: 72.5755 kg

DRUGS (3)
  1. ZOCOR [Suspect]
     Indication: HYPERCHOLESTEROLAEMIA
     Dosage: 40 MG/DAILY/PO; SEE IMAGE
     Route: 048
     Dates: start: 20020101, end: 20040501
  2. ZOCOR [Suspect]
     Indication: HYPERTRIGLYCERIDAEMIA
     Dosage: 40 MG/DAILY/PO; SEE IMAGE
     Route: 048
     Dates: start: 20020101, end: 20040501
  3. LOPID [Concomitant]

REACTIONS (1)
  - RHABDOMYOLYSIS [None]
